FAERS Safety Report 4494909-0 (Version None)
Quarter: 2004Q4

REPORT INFORMATION
  Report Type: 
  Country: None (occurrence: None)
  Receive Date: 20041103
  Receipt Date: 20041018
  Transmission Date: 20050328
  Serious: Yes (Other)
  Sender: FDA-Public Use
  Company Number: US014114

PATIENT
  Sex: Female

DRUGS (1)
  1. ACTIQ [Suspect]
     Dosage: 500 UG Q4HR BUCCAL
     Route: 002

REACTIONS (2)
  - COMA [None]
  - DRUG TOLERANCE [None]
